FAERS Safety Report 17129106 (Version 3)
Quarter: 2020Q1

REPORT INFORMATION
  Report Type: Spontaneous
  Country: FR (occurrence: FR)
  Receive Date: 20191209
  Receipt Date: 20200116
  Transmission Date: 20200409
  Serious: Yes (Hospitalization, Other)
  Sender: FDA-Public Use
  Company Number: FR-009507513-1912FRA002404

PATIENT
  Age: 61 Year
  Sex: Male

DRUGS (11)
  1. RIBAVIRIN. [Suspect]
     Active Substance: RIBAVIRIN
     Dosage: 200 MILLIGRAM, EVERY 4 DAYS
     Route: 048
     Dates: start: 20121106, end: 20130129
  2. RIBAVIRIN. [Suspect]
     Active Substance: RIBAVIRIN
     Dosage: 200 MILLIGRAM, EVERY 5 DAYS
     Route: 048
     Dates: start: 20141201, end: 20150323
  3. VIRAFERONPEG [Suspect]
     Active Substance: PEGINTERFERON ALFA-2B
     Dosage: 80 MICROGRAM, EVERY 1 WEEK
     Dates: start: 20121106, end: 20130129
  4. SOVALDI [Suspect]
     Active Substance: SOFOSBUVIR
     Indication: HEPATITIS C
     Dosage: 400 MILLIGRAM, EVERY 1 DAY
     Route: 048
     Dates: start: 20141201, end: 20150323
  5. HARVONI [Suspect]
     Active Substance: LEDIPASVIR\SOFOSBUVIR
     Indication: HEPATITIS C
     Dosage: 1 DOSAGE FORM, EVERY 1 DAY
     Route: 048
     Dates: start: 20150323, end: 20150615
  6. VICTRELIS [Suspect]
     Active Substance: BOCEPREVIR
     Indication: HEPATITIS C
     Dosage: 200 MILLIGRAM, EVERY 1 DAY
     Route: 048
     Dates: start: 20121204, end: 20130129
  7. OLYSIO [Suspect]
     Active Substance: SIMEPREVIR
     Indication: HEPATITIS C
     Dosage: 150 MILLIGRAM, EVERY 1 DAY
     Route: 048
     Dates: start: 20150323, end: 20150615
  8. VIRAFERONPEG [Suspect]
     Active Substance: PEGINTERFERON ALFA-2B
     Indication: HEPATITIS C
     Dosage: 50 MICROGRAM, EVERY 1 WEEK
     Dates: start: 20020321, end: 20020808
  9. DAKLINZA [Suspect]
     Active Substance: DACLATASVIR
     Indication: HEPATITIS C
     Dosage: 60 MILLIGRAM, EVERY 1 DAY
     Route: 048
     Dates: start: 20141201, end: 20150323
  10. RIBAVIRIN. [Suspect]
     Active Substance: RIBAVIRIN
     Indication: HEPATITIS C
     Dosage: 200 MILLIGRAM, EVERY 4 DAYS
     Route: 048
     Dates: start: 20020321, end: 20020808
  11. RIBAVIRIN. [Suspect]
     Active Substance: RIBAVIRIN
     Dosage: 400 MILLIGRAM, EVERY 2 DAYS
     Route: 048
     Dates: start: 20150323, end: 20150615

REACTIONS (3)
  - Hepatocellular carcinoma [Recovering/Resolving]
  - Lung disorder [Recovered/Resolved]
  - Superinfection bacterial [Recovered/Resolved]

NARRATIVE: CASE EVENT DATE: 20180622
